FAERS Safety Report 9494512 (Version 1)
Quarter: 2013Q3

REPORT INFORMATION
  Report Type: Report from Study
  Country: JP (occurrence: JP)
  Receive Date: 20130903
  Receipt Date: 20130903
  Transmission Date: 20140515
  Serious: Yes (Life-Threatening, Hospitalization, Other)
  Sender: FDA-Public Use
  Company Number: JP-GENZYME-THYM-1004066

PATIENT
  Age: 6 Month
  Sex: Female
  Weight: 7 kg

DRUGS (17)
  1. THYMOGLOBULIN [Suspect]
     Indication: BONE MARROW CONDITIONING REGIMEN
     Dosage: 9 MG, QD
     Route: 065
     Dates: start: 20130121, end: 20130121
  2. CYTARABINE [Suspect]
     Indication: PRODUCT USED FOR UNKNOWN INDICATION
     Dosage: UNK
     Route: 065
  3. PREDONINE [Suspect]
     Indication: GRAFT VERSUS HOST DISEASE
     Dosage: UNK
     Route: 065
     Dates: start: 20130218
  4. SANDIMMUN [Suspect]
     Indication: PROPHYLAXIS AGAINST GRAFT VERSUS HOST DISEASE
     Dosage: UNK
     Route: 065
     Dates: start: 20130123
  5. CYCLOCIDE [Suspect]
     Indication: PRODUCT USED FOR UNKNOWN INDICATION
     Dosage: UNK
     Route: 065
  6. BUSULFEX [Suspect]
     Indication: PRODUCT USED FOR UNKNOWN INDICATION
     Dosage: UNK
     Route: 065
  7. FUNGUARD [Concomitant]
     Indication: INFECTION PROPHYLAXIS
     Dosage: UNK
     Route: 065
     Dates: start: 20130110, end: 20130318
  8. VICCLOX [Concomitant]
     Indication: INFECTION PROPHYLAXIS
     Dosage: UNK
     Route: 065
     Dates: start: 20130110, end: 20130301
  9. SOL-MELCORT [Concomitant]
     Indication: ALLERGY PROPHYLAXIS
     Dosage: UNK
     Route: 065
     Dates: start: 20130121, end: 20130123
  10. HAPTOGLOBINS [Concomitant]
     Indication: PROPHYLAXIS
     Dosage: UNK
     Route: 065
     Dates: start: 20130123, end: 20130123
  11. METHOTREXAT [Concomitant]
     Indication: PROPHYLAXIS AGAINST GRAFT VERSUS HOST DISEASE
     Dosage: UNK
     Route: 065
     Dates: start: 20130124, end: 20130129
  12. ATARAX-P [Concomitant]
     Indication: ALLERGY PROPHYLAXIS
     Dosage: UNK
     Route: 065
  13. INTRALIPID [Concomitant]
     Indication: MEDICAL DIET
     Dosage: UNK
     Route: 065
     Dates: start: 20130223, end: 20130315
  14. FLUCONAZOLE [Concomitant]
     Indication: INFECTION PROPHYLAXIS
     Dosage: UNK
     Route: 065
     Dates: start: 20130319
  15. URSO [Concomitant]
     Indication: PROPHYLAXIS
     Dosage: UNK
     Route: 065
     Dates: start: 20130124
  16. BIOFERMIN R [Concomitant]
     Indication: INFECTION PROPHYLAXIS
     Dosage: UNK
     Route: 065
     Dates: start: 20130110, end: 20130315
  17. BACCIDAL [Concomitant]
     Indication: INFECTION PROPHYLAXIS
     Dosage: UNK
     Route: 065
     Dates: start: 20130110, end: 20130419

REACTIONS (16)
  - Chronic graft versus host disease [Unknown]
  - Acute graft versus host disease [Unknown]
  - Neutropenia [Unknown]
  - Staphylococcal sepsis [Not Recovered/Not Resolved]
  - Cellulitis [Recovered/Resolved]
  - Pyrexia [Recovered/Resolved]
  - Haematochezia [Recovered/Resolved]
  - Rash [Recovered/Resolved]
  - Diarrhoea [Recovered/Resolved]
  - Acute lymphocytic leukaemia recurrent [Unknown]
  - Hypoalbuminaemia [Recovered/Resolved]
  - Antithrombin III decreased [Not Recovered/Not Resolved]
  - Hypogammaglobulinaemia [Not Recovered/Not Resolved]
  - Dermatitis diaper [Not Recovered/Not Resolved]
  - Oedema [Recovered/Resolved]
  - Milk allergy [Not Recovered/Not Resolved]
